FAERS Safety Report 17650114 (Version 1)
Quarter: 2020Q2

REPORT INFORMATION
  Report Type: Spontaneous
  Country: US (occurrence: US)
  Receive Date: 20200409
  Receipt Date: 20200409
  Transmission Date: 20200713
  Serious: Yes (Death, Other)
  Sender: FDA-Public Use
  Company Number: US-DRREDDYS-USA/USA/20/0121797

PATIENT
  Age: 63 Year
  Sex: Male

DRUGS (1)
  1. DECITABINE. [Suspect]
     Active Substance: DECITABINE
     Indication: MYELOID LEUKAEMIA
     Route: 058

REACTIONS (4)
  - Incorrect route of product administration [Unknown]
  - Infection [Unknown]
  - Neutropenia [Unknown]
  - Sepsis [Fatal]
